FAERS Safety Report 9856752 (Version 2)
Quarter: 2014Q1

REPORT INFORMATION
  Report Type: Spontaneous
  Country: US (occurrence: US)
  Receive Date: 20140130
  Receipt Date: 20140220
  Transmission Date: 20141002
  Serious: Yes (Hospitalization)
  Sender: FDA-Public Use
  Company Number: US-BRISTOL-MYERS SQUIBB COMPANY-20070421

PATIENT
  Age: 5 Week
  Sex: Female

DRUGS (1)
  1. ABILIFY TABS 5 MG [Suspect]
     Route: 050

REACTIONS (5)
  - Dehydration [Recovered/Resolved]
  - Exposure during breast feeding [Unknown]
  - Blood urine present [Recovered/Resolved]
  - Pyrexia [Recovered/Resolved]
  - Lethargy [Recovered/Resolved]
